FAERS Safety Report 14242077 (Version 2)
Quarter: 2017Q4

REPORT INFORMATION
  Report Type: Spontaneous
  Country: US (occurrence: US)
  Receive Date: 20171201
  Receipt Date: 20171201
  Transmission Date: 20180321
  Serious: Yes (Death, Hospitalization, Other)
  Sender: FDA-Public Use
  Company Number: US-TEVA-2017-US-826218

PATIENT
  Age: 70 Year
  Sex: Male
  Weight: 89.89 kg

DRUGS (31)
  1. JAKAFI [Concomitant]
     Active Substance: RUXOLITINIB
     Indication: POLYCYTHAEMIA VERA
     Dosage: BID
     Dates: start: 20170121
  2. HEPSERA [Concomitant]
     Active Substance: ADEFOVIR DIPIVOXIL
     Route: 065
  3. AGRYLIN [Concomitant]
     Active Substance: ANAGRELIDE HYDROCHLORIDE
     Route: 065
  4. LIORESAL [Concomitant]
     Active Substance: BACLOFEN
     Route: 065
  5. COMBIGAN [Concomitant]
     Active Substance: BRIMONIDINE TARTRATE\TIMOLOL MALEATE
     Dosage: DROP
     Route: 065
  6. PULMICORT TURBUHALER [Concomitant]
     Active Substance: BUDESONIDE
     Route: 065
  7. LUMIGAN [Concomitant]
     Active Substance: BIMATOPROST
  8. MULTIVITAMIN [Concomitant]
     Active Substance: VITAMINS
     Route: 065
  9. PILOCARPINE. [Concomitant]
     Active Substance: PILOCARPINE
     Route: 065
  10. DIAMOX SEQUELS [Suspect]
     Active Substance: ACETAZOLAMIDE
     Indication: GLAUCOMA
     Route: 065
     Dates: end: 20170208
  11. ADVAIR DISKUS [Concomitant]
     Active Substance: FLUTICASONE PROPIONATE\SALMETEROL XINAFOATE
     Dosage: 100/50 MCG
     Route: 065
  12. SYNTHROID [Concomitant]
     Active Substance: LEVOTHYROXINE SODIUM
     Dosage: MCG
     Route: 065
  13. GLYCOLAX [Concomitant]
     Active Substance: POLYETHYLENE GLYCOL 3350
     Route: 065
  14. MIRAPEX [Concomitant]
     Active Substance: PRAMIPEXOLE DIHYDROCHLORIDE
     Route: 065
  15. FLOMAX [Concomitant]
     Active Substance: TAMSULOSIN HYDROCHLORIDE
     Route: 065
  16. EFUDEX [Concomitant]
     Active Substance: FLUOROURACIL
     Route: 065
     Dates: start: 20170121
  17. BROVANA [Concomitant]
     Active Substance: ARFORMOTEROL TARTRATE
     Route: 065
  18. VITAMIN D2 [Concomitant]
     Active Substance: ERGOCALCIFEROL
     Route: 065
  19. LASIX [Concomitant]
     Active Substance: FUROSEMIDE
     Route: 065
  20. SILVADENE [Concomitant]
     Active Substance: SILVER SULFADIAZINE
     Route: 065
  21. VITAMIN E [Concomitant]
     Active Substance: .ALPHA.-TOCOPHEROL
     Route: 065
  22. VENTOLIN HFA [Concomitant]
     Active Substance: ALBUTEROL SULFATE
     Route: 065
  23. NEXIUM [Concomitant]
     Active Substance: ESOMEPRAZOLE MAGNESIUM
     Route: 065
  24. XALATAN [Concomitant]
     Active Substance: LATANOPROST
     Route: 065
  25. KLOR-CON [Concomitant]
     Active Substance: POTASSIUM CHLORIDE
     Dosage: 20 MEQ
     Route: 065
  26. ASPIRIN. [Concomitant]
     Active Substance: ASPIRIN
     Route: 065
  27. CYMBALTA [Concomitant]
     Active Substance: DULOXETINE HYDROCHLORIDE
     Route: 065
  28. AVODART [Concomitant]
     Active Substance: DUTASTERIDE
     Route: 065
  29. AZOPT [Concomitant]
     Active Substance: BRINZOLAMIDE
     Dosage: 1 %
     Route: 065
  30. NEURONTIN [Concomitant]
     Active Substance: GABAPENTIN
     Route: 065
  31. TYLENOL [Concomitant]
     Active Substance: ACETAMINOPHEN
     Route: 065

REACTIONS (1)
  - Metabolic encephalopathy [Unknown]

NARRATIVE: CASE EVENT DATE: 20170208
